FAERS Safety Report 7412435-3 (Version None)
Quarter: 2011Q2

REPORT INFORMATION
  Report Type: 
  Country: None (occurrence: None)
  Receive Date: 20110413
  Receipt Date: 20110401
  Transmission Date: 20111010
  Serious: Yes (Hospitalization)
  Sender: FDA-Public Use
  Company Number: PHHY2011FR27356

PATIENT
  Sex: Female

DRUGS (10)
  1. LEPONEX [Suspect]
     Dosage: UNK
     Dates: start: 20050101, end: 20100717
  2. DEBRIDAT [Concomitant]
  3. PLAVIX [Suspect]
     Dosage: 75 MG, UNK
     Dates: start: 20010101, end: 20100713
  4. MODOPAR [Concomitant]
     Dosage: 100/25 MG
  5. LASIX [Concomitant]
  6. SYMBICORT [Concomitant]
  7. ESCITALOPRAM [Suspect]
     Dosage: 20 MG, UNK
     Route: 048
     Dates: start: 20050101, end: 20100713
  8. XANAX [Concomitant]
  9. POTASSIUM [Concomitant]
  10. ESOMEPRAZOLE [Concomitant]

REACTIONS (2)
  - PRURITUS [None]
  - PURPURA [None]
